FAERS Safety Report 17175728 (Version 1)
Quarter: 2019Q4

REPORT INFORMATION
  Report Type: Report from Study
  Country: None (occurrence: AU)
  Receive Date: 20191219
  Receipt Date: 20191219
  Transmission Date: 20200122
  Serious: Yes (Other)
  Sender: FDA-Public Use
  Company Number: AU-ABBVIE-19K-008-3195903-00

PATIENT
  Age: 59 Year
  Sex: Male

DRUGS (2)
  1. LUCRIN DEPOT [Suspect]
     Active Substance: LEUPROLIDE ACETATE
     Indication: PROSTATE CANCER
     Dosage: APPROX DEC 2015 OR JAN 2016
     Route: 030
     Dates: start: 20150716, end: 201512
  2. LUCRIN DEPOT [Suspect]
     Active Substance: LEUPROLIDE ACETATE
     Route: 030
     Dates: start: 20191212

REACTIONS (3)
  - Prostatectomy [Unknown]
  - Mobility decreased [Not Recovered/Not Resolved]
  - Injection site pain [Not Recovered/Not Resolved]

NARRATIVE: CASE EVENT DATE: 2015
